FAERS Safety Report 4911964-1 (Version None)
Quarter: 2006Q1

REPORT INFORMATION
  Report Type: 
  Country: None (occurrence: None)
  Receive Date: 20060215
  Receipt Date: 20060209
  Transmission Date: 20060701
  Serious: Yes (Other)
  Sender: FDA-Public Use
  Company Number: PHBS2006BR02256

PATIENT
  Sex: Female
  Weight: 76 kg

DRUGS (3)
  1. FORASEQ [Suspect]
     Indication: BRONCHOSPASM
     Dosage: 1 DF, BID
  2. LEVOTHYROXINE SODIUM [Concomitant]
     Indication: HYPOTHYROIDISM
     Dosage: 125 UG/DAY
  3. CITALOPRAM HYDROBROMIDE [Concomitant]
     Indication: DEPRESSION

REACTIONS (8)
  - AGITATION [None]
  - ANXIETY [None]
  - BLOOD INSULIN INCREASED [None]
  - BLOOD THYROID STIMULATING HORMONE DECREASED [None]
  - NERVOUSNESS [None]
  - PALPITATIONS [None]
  - THYROXINE DECREASED [None]
  - TRI-IODOTHYRONINE DECREASED [None]
